FAERS Safety Report 8404876 (Version 5)
Quarter: 2012Q4

REPORT INFORMATION
  Report Type: 
  Country: US (occurrence: US)
  Receive Date: 20120214
  Receipt Date: 20121015
  Transmission Date: 20130627
  Serious: Yes (Hospitalization)
  Sender: FDA-Public Use
  Company Number: US-BAYER-2012-013108

PATIENT
  Age: 46 Year
  Sex: Female
  Weight: 80.73 kg

DRUGS (4)
  1. YAZ [Suspect]
     Indication: PROPHYLAXIS
     Dosage: UNK
     Dates: start: 2007, end: 2008
  2. YAZ [Suspect]
     Indication: PELVIC PAIN
  3. NAPROXEN [Concomitant]
  4. SYNTHROID [Concomitant]
     Dosage: 100mcg, UNK

REACTIONS (9)
  - Pulmonary embolism [None]
  - Deep vein thrombosis [None]
  - Injury [None]
  - Pain [None]
  - Physical disability [None]
  - Anxiety [None]
  - Emotional distress [None]
  - General physical health deterioration [None]
  - Anhedonia [None]
